FAERS Safety Report 17428950 (Version 1)
Quarter: 2020Q1

REPORT INFORMATION
  Report Type: Other
  Country: CH (occurrence: CH)
  Receive Date: 20200218
  Receipt Date: 20200218
  Transmission Date: 20200409
  Serious: Yes (Death, Hospitalization)
  Sender: FDA-Public Use
  Company Number: CH-DEXPHARM-20200149

PATIENT
  Age: 42 Year
  Sex: Female

DRUGS (4)
  1. METAMIZOLE [Suspect]
     Active Substance: METAMIZOLE
  2. DICLOFENAC [Interacting]
     Active Substance: DICLOFENAC
  3. PARACETAMOL [Interacting]
     Active Substance: ACETAMINOPHEN
  4. IBUPROFEN. [Interacting]
     Active Substance: IBUPROFEN

REACTIONS (4)
  - Ischaemic stroke [Fatal]
  - Drug interaction [Fatal]
  - Pneumonia [Fatal]
  - Respiratory failure [Fatal]
